FAERS Safety Report 5744436-5 (Version None)
Quarter: 2008Q2

REPORT INFORMATION
  Report Type: 
  Country: None (occurrence: None)
  Receive Date: 20080520
  Receipt Date: 20080514
  Transmission Date: 20081010
  Serious: Yes (Other)
  Sender: FDA-Public Use
  Company Number: GB-ROCHE-561174

PATIENT
  Sex: Female
  Weight: 106.1 kg

DRUGS (11)
  1. ORLISTAT [Suspect]
     Indication: OBESITY
     Route: 048
     Dates: start: 20080402
  2. WARFARIN [Concomitant]
     Indication: ANTICOAGULANT THERAPY
     Dosage: AS DIRECTED. 1MG AND 3MG STRENGHT TABLETS.
     Route: 048
  3. SOTALOL HCL [Concomitant]
     Route: 048
  4. CITALOPRAM HYDROBROMIDE [Concomitant]
     Indication: DEPRESSION
     Route: 048
  5. CETRABEN [Concomitant]
  6. CETRABEN [Concomitant]
  7. LEVOCETIRIZINE [Concomitant]
  8. ACETAMINOPHEN [Concomitant]
  9. SYMBICORT [Concomitant]
     Route: 055
  10. SYMBICORT [Concomitant]
     Route: 055
  11. TERBUTALINE SULFATE [Concomitant]
     Route: 055

REACTIONS (1)
  - CYST [None]
